FAERS Safety Report 4675239-0 (Version None)
Quarter: 2005Q2

REPORT INFORMATION
  Report Type: 
  Country: None (occurrence: None)
  Receive Date: 20050527
  Receipt Date: 20050518
  Transmission Date: 20051028
  Serious: Yes (Hospitalization, Other)
  Sender: FDA-Public Use
  Company Number: PHEH2005US05659

PATIENT
  Age: 46 Year
  Sex: Female
  Weight: 47 kg

DRUGS (13)
  1. ZOMETA [Suspect]
     Indication: BREAST CANCER METASTATIC
     Dosage: 4MG Q4WK
     Route: 042
     Dates: start: 20030101
  2. TAXOL [Concomitant]
     Dosage: 80MG/M2
  3. ALOXI [Concomitant]
  4. TAGAMET [Concomitant]
     Route: 042
  5. DECADRON                                /CAN/ [Concomitant]
  6. BENADRYL ^WARNER-LAMBERT^ /USA/ [Concomitant]
  7. NEXIUM [Concomitant]
  8. ZOLOFT [Concomitant]
  9. VICODIN [Concomitant]
  10. DURAGESIC-100 [Concomitant]
  11. NEUPOGEN [Concomitant]
  12. ARANESP [Concomitant]
  13. OXYCODONE HCL [Concomitant]

REACTIONS (14)
  - ANAEMIA [None]
  - CANDIDIASIS [None]
  - HAEMATOCRIT DECREASED [None]
  - HAEMOGLOBIN DECREASED [None]
  - HYPOCALCAEMIA [None]
  - HYPOKALAEMIA [None]
  - MUSCLE SPASMS [None]
  - MYALGIA [None]
  - NAUSEA [None]
  - PLATELET COUNT DECREASED [None]
  - PNEUMONIA [None]
  - RED BLOOD CELL COUNT DECREASED [None]
  - VOMITING [None]
  - WHITE BLOOD CELL COUNT INCREASED [None]
